FAERS Safety Report 5703007-7 (Version None)
Quarter: 2008Q2

REPORT INFORMATION
  Report Type: 
  Country: None (occurrence: None)
  Receive Date: 20080408
  Receipt Date: 20080328
  Transmission Date: 20081010
  Serious: No
  Sender: FDA-Public Use
  Company Number: 20084973

PATIENT
  Sex: Male
  Weight: 60 kg

DRUGS (1)
  1. LIORESAL [Suspect]
     Indication: MUSCLE SPASTICITY
     Dosage: 22.6-50.0 MCG, DAILY, INTRATHECAL
     Route: 037

REACTIONS (3)
  - GAIT DISTURBANCE [None]
  - HEART RATE DECREASED [None]
  - HYPOTONIA [None]
